FAERS Safety Report 16761562 (Version 1)
Quarter: 2019Q3

REPORT INFORMATION
  Report Type: Spontaneous
  Country: US (occurrence: US)
  Receive Date: 20190830
  Receipt Date: 20190830
  Transmission Date: 20191005
  Serious: No
  Sender: FDA-Public Use
  Company Number: US-SA-2019SA239213

PATIENT
  Age: 27 Year
  Sex: Female
  Weight: 93.88 kg

DRUGS (9)
  1. NUVARING [Concomitant]
     Active Substance: ETHINYL ESTRADIOL\ETONOGESTREL
     Dosage: 1 DF, QM
     Route: 067
     Dates: start: 20190415
  2. EPINEPHRINE. [Concomitant]
     Active Substance: EPINEPHRINE
     Dosage: 0.3 MG, PRN
     Dates: start: 20190417
  3. XANAX [Concomitant]
     Active Substance: ALPRAZOLAM
     Dosage: 0.5 MG, TID
     Route: 048
     Dates: start: 20190415
  4. SODIUM CHLORIDE. [Concomitant]
     Active Substance: SODIUM CHLORIDE
     Dosage: UNK UNK, UNK
     Route: 042
     Dates: start: 20190417
  5. NORMAL SALINE [Concomitant]
     Active Substance: SODIUM CHLORIDE
     Dosage: UNK UNK, UNK
     Route: 042
     Dates: start: 20190417
  6. LEXAPRO [Concomitant]
     Active Substance: ESCITALOPRAM OXALATE
     Dosage: 1 DF, QD
     Route: 048
     Dates: start: 20190415
  7. STERILE WATER [Concomitant]
     Active Substance: WATER
     Dosage: UNK UNK, UNK
     Route: 042
     Dates: start: 20190417
  8. LMX [LIDOCAINE] [Concomitant]
     Dosage: UNK UNK, UD
     Route: 061
     Dates: start: 20190417
  9. FABRAZYME [Suspect]
     Active Substance: AGALSIDASE BETA
     Indication: FABRY^S DISEASE
     Dosage: 100 MG, QOW
     Route: 042
     Dates: start: 20190415

REACTIONS (1)
  - Dyspnoea [Unknown]
